FAERS Safety Report 13739764 (Version 1)
Quarter: 2017Q3

REPORT INFORMATION
  Report Type: Spontaneous
  Country: US (occurrence: US)
  Receive Date: 20170710
  Receipt Date: 20170710
  Transmission Date: 20171127
  Serious: Yes (Other)
  Sender: FDA-Public Use
  Company Number: US-TEVA-784657USA

PATIENT
  Sex: Male

DRUGS (3)
  1. METHOTREXATE. [Concomitant]
     Active Substance: METHOTREXATE
  2. VINCRISTINE [Concomitant]
     Active Substance: VINCRISTINE
  3. ACICLOVIR [Suspect]
     Active Substance: ACYCLOVIR
     Route: 065

REACTIONS (7)
  - Fatigue [Unknown]
  - Night sweats [Unknown]
  - Hypoaesthesia oral [Unknown]
  - Decreased appetite [Unknown]
  - Acute lymphocytic leukaemia recurrent [Unknown]
  - Hypoaesthesia [Unknown]
  - Bone pain [Unknown]
